FAERS Safety Report 6029691-9 (Version None)
Quarter: 2009Q1

REPORT INFORMATION
  Report Type: 
  Country: None (occurrence: None)
  Receive Date: 20090107
  Receipt Date: 20090101
  Transmission Date: 20090719
  Serious: Yes (Other)
  Sender: FDA-Public Use
  Company Number: PHHY2009NO00474

PATIENT
  Sex: Male

DRUGS (7)
  1. ZOMETA [Suspect]
     Indication: PROSTATE CANCER METASTATIC
     Dosage: 4 MG, QMO
     Route: 042
     Dates: start: 20071128
  2. MEDROL [Concomitant]
  3. METHADONE HCL [Concomitant]
  4. ZOFRAN [Concomitant]
  5. ACETAMINOPHEN [Concomitant]
  6. NEURONTIN [Concomitant]
  7. SAROTEX [Concomitant]

REACTIONS (2)
  - OSTEONECROSIS [None]
  - TOOTH EXTRACTION [None]
